FAERS Safety Report 19285160 (Version 1)
Quarter: 2021Q2

REPORT INFORMATION
  Report Type: Spontaneous
  Country: US (occurrence: US)
  Receive Date: 20210521
  Receipt Date: 20210521
  Transmission Date: 20210717
  Serious: No
  Sender: FDA-Public Use
  Company Number: US-CELLTRION INC.-2021US005556

PATIENT

DRUGS (3)
  1. TRUXIMA [Suspect]
     Active Substance: RITUXIMAB-ABBS
     Indication: WALDENSTROM^S MACROGLOBULINAEMIA
     Dosage: 720 MG, 1/WEEK #1/4
     Dates: start: 20210402
  2. TRUXIMA [Suspect]
     Active Substance: RITUXIMAB-ABBS
     Indication: POLYNEUROPATHY
     Dosage: 720 MG, 1/WEEK #2/4
     Dates: start: 20210408
  3. TRUXIMA [Suspect]
     Active Substance: RITUXIMAB-ABBS
     Dosage: UNK
     Dates: start: 20210415

REACTIONS (1)
  - Off label use [Unknown]
